FAERS Safety Report 7102766-9 (Version None)
Quarter: 2010Q4

REPORT INFORMATION
  Report Type: 
  Country: None (occurrence: None)
  Receive Date: 20101115
  Receipt Date: 20101108
  Transmission Date: 20110411
  Serious: Yes (Other)
  Sender: FDA-Public Use
  Company Number: PHHY2010FR76223

PATIENT
  Age: 56 Year
  Sex: Male

DRUGS (12)
  1. STALEVO 100 [Suspect]
     Indication: PARKINSON'S DISEASE
     Dosage: 200 MG, TID
     Route: 048
     Dates: end: 20101001
  2. REQUIP [Suspect]
     Indication: PARKINSON'S DISEASE
     Dosage: 8 MG, TID
     Route: 048
     Dates: start: 20070101, end: 20101001
  3. ATACAND [Concomitant]
     Dosage: 8 MG, UNK
     Route: 048
  4. ALLOPURINOL [Concomitant]
     Dosage: UNK
  5. AVODART [Concomitant]
     Dosage: UNK
  6. TAMSULOSIN [Concomitant]
     Dosage: UNK
  7. DEPAMIDE [Concomitant]
     Dosage: 300 MG, UNK
     Route: 048
  8. PROZAC [Concomitant]
     Dosage: 20 MG, UNK
     Route: 048
  9. XANAX [Concomitant]
     Dosage: 0.25 MG, UNK
     Route: 048
  10. RIVOTRIL [Concomitant]
     Dosage: UNK
  11. NOCTRAN [Concomitant]
     Dosage: 10 MG, UNK
     Route: 048
  12. DAFALGAN [Concomitant]
     Dosage: UNK

REACTIONS (5)
  - BULIMIA NERVOSA [None]
  - DRUG WITHDRAWAL SYNDROME [None]
  - IMPULSE-CONTROL DISORDER [None]
  - INSOMNIA [None]
  - WEIGHT INCREASED [None]
